FAERS Safety Report 7585827-X (Version None)
Quarter: 2011Q3

REPORT INFORMATION
  Report Type: 
  Country: None (occurrence: None)
  Receive Date: 20110701
  Receipt Date: 20110622
  Transmission Date: 20111222
  Serious: Yes (Hospitalization)
  Sender: FDA-Public Use
  Company Number: FR-SANOFI-AVENTIS-2011SA040164

PATIENT
  Age: 34 Year
  Sex: Female

DRUGS (3)
  1. HYDROXYCHLOROQUINE SULFATE [Suspect]
     Indication: ANTIPHOSPHOLIPID SYNDROME
     Route: 065
  2. HYDROXYCHLOROQUINE SULFATE [Suspect]
     Indication: SYSTEMIC LUPUS ERYTHEMATOSUS
     Route: 065
  3. PREDNISONE [Concomitant]
     Route: 065

REACTIONS (5)
  - RENAL INFARCT [None]
  - DRUG WITHDRAWAL SYNDROME [None]
  - HAEMATURIA [None]
  - BLOOD CREATININE INCREASED [None]
  - HYPERTENSION [None]
